FAERS Safety Report 16255091 (Version 4)
Quarter: 2019Q3

REPORT INFORMATION
  Report Type: Spontaneous
  Country: US (occurrence: US)
  Receive Date: 20190430
  Receipt Date: 20190812
  Transmission Date: 20191004
  Serious: Yes (Hospitalization)
  Sender: FDA-Public Use
  Company Number: US-CELGENEUS-USA-20190410356

PATIENT
  Age: 43 Year
  Sex: Female

DRUGS (6)
  1. ROBITUSSIN (GUAIFENESIN) [Concomitant]
     Active Substance: GUAIFENESIN
     Indication: COUGH
     Dosage: 900 MILLIGRAM
     Route: 065
     Dates: start: 20190307, end: 20190406
  2. TYLENOL [Concomitant]
     Active Substance: ACETAMINOPHEN
     Indication: PYREXIA
     Dosage: 2600 MILLIGRAM
     Route: 065
     Dates: start: 20190327, end: 20190406
  3. DECADRON [Concomitant]
     Active Substance: DEXAMETHASONE
     Indication: PRODUCT USED FOR UNKNOWN INDICATION
     Route: 065
     Dates: start: 20190307
  4. POMALYST [Suspect]
     Active Substance: POMALIDOMIDE
     Dosage: 4MILLIGRAM
     Route: 048
     Dates: start: 20190319, end: 20190523
  5. POMALYST [Suspect]
     Active Substance: POMALIDOMIDE
     Dosage: 2 MILLIGRAM
     Route: 048
     Dates: start: 20190806
  6. POMALYST [Suspect]
     Active Substance: POMALIDOMIDE
     Indication: PLASMA CELL MYELOMA
     Dosage: 4 MILLIGRAM
     Route: 048
     Dates: start: 201901

REACTIONS (3)
  - White blood cell count decreased [Recovered/Resolved]
  - Influenza [Recovered/Resolved]
  - Febrile neutropenia [Recovered/Resolved]

NARRATIVE: CASE EVENT DATE: 20190326
